FAERS Safety Report 5833536-7 (Version None)
Quarter: 2008Q3

REPORT INFORMATION
  Report Type: 
  Country: None (occurrence: None)
  Receive Date: 20080804
  Receipt Date: 20080804
  Transmission Date: 20090109
  Serious: Yes (Other)
  Sender: FDA-Public Use
  Company Number: None

PATIENT
  Age: 44 Year
  Sex: Female
  Weight: 68.0396 kg

DRUGS (1)
  1. YASMIN [Suspect]
     Indication: MENORRHAGIA
     Dosage: 1 PILL ONCE DAILY PO
     Route: 048
     Dates: start: 20080413, end: 20080627

REACTIONS (5)
  - ANXIETY [None]
  - ASTHENIA [None]
  - HEART RATE INCREASED [None]
  - NERVOUSNESS [None]
  - RESTLESSNESS [None]
